FAERS Safety Report 10404537 (Version 1)
Quarter: 2014Q2

REPORT INFORMATION
  Report Type: Spontaneous
  Country: US (occurrence: None)
  Receive Date: 20140514
  Receipt Date: 20140514
  Transmission Date: 20141212
  Serious: Yes (Other)
  Sender: FDA-Public Use
  Company Number: 089463

PATIENT
  Sex: 0

DRUGS (6)
  1. CIMZIA [Suspect]
     Indication: CROHN^S DISEASE
     Dosage: ?
     Dates: start: 20110520
  2. IMURAN [Concomitant]
  3. 6-MP [Concomitant]
  4. FLAGYL [Concomitant]
  5. HUMIRA [Concomitant]
  6. PREDNISONE [Concomitant]

REACTIONS (4)
  - Small intestinal resection [None]
  - Abscess [None]
  - Fistula [None]
  - Injection site pain [None]
